FAERS Safety Report 7631715-X (Version None)
Quarter: 2011Q3

REPORT INFORMATION
  Report Type: 
  Country: None (occurrence: None)
  Receive Date: 20110725
  Receipt Date: 20110712
  Transmission Date: 20111222
  Serious: Yes (Hospitalization, Other)
  Sender: FDA-Public Use
  Company Number: US-ELI_LILLY_AND_COMPANY-US201107004982

PATIENT
  Sex: Female

DRUGS (5)
  1. LOTREL [Concomitant]
     Indication: BLOOD PRESSURE
  2. TYLENOL                                 /SCH/ [Concomitant]
  3. PREDNISONE [Concomitant]
  4. THYROID TAB [Concomitant]
  5. FORTEO [Suspect]
     Indication: OSTEOPOROSIS
     Dosage: 20 UG, QD
     Route: 065
     Dates: start: 20100901

REACTIONS (5)
  - MUSCLE DISORDER [None]
  - PAIN [None]
  - FALL [None]
  - DIABETES MELLITUS [None]
  - HIP FRACTURE [None]
